FAERS Safety Report 6108947-5 (Version None)
Quarter: 2009Q1

REPORT INFORMATION
  Report Type: 
  Country: None (occurrence: None)
  Receive Date: 20090310
  Receipt Date: 20090224
  Transmission Date: 20090719
  Serious: Yes (Hospitalization, Other)
  Sender: FDA-Public Use
  Company Number: CA-ELI_LILLY_AND_COMPANY-CA200902007429

PATIENT
  Age: 77 Year
  Sex: Female

DRUGS (4)
  1. FORTEO [Suspect]
     Indication: OSTEOPOROSIS
     Dosage: 20 UG, DAILY (1/D)
     Route: 058
     Dates: start: 20080808
  2. SYNTHROID [Concomitant]
  3. CALCIUM D [Concomitant]
  4. IRON [Concomitant]

REACTIONS (4)
  - CONSTIPATION [None]
  - FALL [None]
  - PAIN [None]
  - PELVIC FRACTURE [None]
